FAERS Safety Report 15455588 (Version 1)
Quarter: 2018Q4

REPORT INFORMATION
  Report Type: Spontaneous
  Country: TH (occurrence: TH)
  Receive Date: 20181002
  Receipt Date: 20181002
  Transmission Date: 20190204
  Serious: Yes (Death, Other)
  Sender: FDA-Public Use
  Company Number: TH-GLAXOSMITHKLINE-TH2018176973

PATIENT
  Age: 73 Year
  Sex: Male

DRUGS (4)
  1. ITRACONAZOLE. [Suspect]
     Active Substance: ITRACONAZOLE
     Indication: PYTHIUM INSIDIOSUM INFECTION
     Dosage: UNK
     Route: 065
  2. AMPHOTERICIN B. [Suspect]
     Active Substance: AMPHOTERICIN B
     Indication: PYTHIUM INSIDIOSUM INFECTION
     Dosage: UNK
     Route: 065
  3. TERBINAFINE. [Suspect]
     Active Substance: TERBINAFINE
     Indication: PYTHIUM INSIDIOSUM INFECTION
     Dosage: UNK
     Route: 065
  4. DEOXYCHOLIC ACID [Suspect]
     Active Substance: DEOXYCHOLIC ACID
     Indication: PYTHIUM INSIDIOSUM INFECTION
     Dosage: UNK
     Route: 065

REACTIONS (3)
  - Acute kidney injury [Fatal]
  - Sepsis [Fatal]
  - Product use in unapproved indication [Unknown]
